FAERS Safety Report 6684103-7 (Version None)
Quarter: 2010Q2

REPORT INFORMATION
  Report Type: 
  Country: None (occurrence: None)
  Receive Date: 20100416
  Receipt Date: 20100407
  Transmission Date: 20101027
  Serious: No
  Sender: FDA-Public Use
  Company Number: PHHY2010FR18906

PATIENT
  Sex: Female
  Weight: 56 kg

DRUGS (4)
  1. ACLASTA [Suspect]
     Indication: OSTEOPOROSIS
     Dosage: UNK
     Route: 042
     Dates: start: 20100217
  2. UVEDOSE [Concomitant]
     Indication: OSTEOPOROSIS
     Dosage: 1 VIAL EVERY 3 MONTHS
     Dates: start: 20070101
  3. CACIT D3 [Concomitant]
     Indication: OSTEOPOROSIS
     Dosage: 1 DF DAILY
     Dates: start: 20070101
  4. PIASCLEDINE [Concomitant]
     Indication: OSTEOARTHRITIS
     Dosage: 300 MG, QD
     Dates: start: 20091215

REACTIONS (4)
  - EXTRAVASATION [None]
  - OEDEMA PERIPHERAL [None]
  - PAIN IN EXTREMITY [None]
  - PERIPHERAL COLDNESS [None]
